FAERS Safety Report 6656146-0 (Version None)
Quarter: 2010Q1

REPORT INFORMATION
  Report Type: 
  Country: None (occurrence: None)
  Receive Date: 20100317
  Receipt Date: 20091223
  Transmission Date: 20100710
  Serious: No
  Sender: FDA-Public Use
  Company Number: DSA_42249_2009

PATIENT
  Sex: Male

DRUGS (2)
  1. XENAZINE [Suspect]
     Indication: HUNTINGTON'S CHOREA
     Dosage: 25 MG BID ORAL
     Route: 048
     Dates: start: 20090331, end: 20091201
  2. LEXAPRO [Concomitant]

REACTIONS (1)
  - FATIGUE [None]
